FAERS Safety Report 8395001-5 (Version None)
Quarter: 2012Q2

REPORT INFORMATION
  Report Type: 
  Country: None (occurrence: None)
  Receive Date: 20120530
  Receipt Date: 20120524
  Transmission Date: 20120825
  Serious: Yes (Death, Other)
  Sender: FDA-Public Use
  Company Number: US-ELI_LILLY_AND_COMPANY-US201205008844

PATIENT
  Sex: Female

DRUGS (1)
  1. GEMZAR [Suspect]

REACTIONS (2)
  - HOSPICE CARE [None]
  - NEOPLASM PROGRESSION [None]
